FAERS Safety Report 6241525-6 (Version None)
Quarter: 2009Q2

REPORT INFORMATION
  Report Type: 
  Country: None (occurrence: None)
  Receive Date: 20090623
  Receipt Date: 20040310
  Transmission Date: 20091009
  Serious: Yes (Hospitalization, Other)
  Sender: FDA-Public Use
  Company Number: BE-ROCHE-361380

PATIENT
  Sex: Male
  Weight: 70.2 kg

DRUGS (26)
  1. DACLIZUMAB [Suspect]
     Dosage: BASELINE VISIT
     Route: 042
     Dates: start: 20040225, end: 20040225
  2. DACLIZUMAB [Suspect]
     Dosage: WEEK 2 VISIT
     Route: 042
     Dates: start: 20040311
  3. DACLIZUMAB [Suspect]
     Dosage: WEEK 4,6 AND 8 VISIT
     Route: 042
     Dates: start: 20040325, end: 20040422
  4. MYCOPHENOLATE MOFETIL [Suspect]
     Route: 048
     Dates: start: 20040225, end: 20040225
  5. MYCOPHENOLATE MOFETIL [Suspect]
     Route: 048
     Dates: start: 20040226
  6. CYCLOSPORINE [Suspect]
     Dosage: DRUG REPORTED: NEORAL (CICLOSPORINE)
     Route: 048
     Dates: start: 20040225, end: 20040225
  7. CYCLOSPORINE [Suspect]
     Route: 048
     Dates: start: 20040226
  8. MEDROL [Suspect]
     Route: 048
     Dates: start: 20040228, end: 20040610
  9. KREDEX [Concomitant]
     Route: 048
     Dates: start: 20040226
  10. BACTRIM DS [Concomitant]
     Route: 048
     Dates: start: 20040226, end: 20040826
  11. CYMEVENE [Concomitant]
     Route: 042
     Dates: start: 20040226, end: 20040307
  12. CYMEVENE [Concomitant]
     Route: 048
     Dates: start: 20040308, end: 20040524
  13. SULFAMETHOXAZOLE AND TRIMETHOPRIM DOUBLE STRENGTH [Concomitant]
     Route: 048
     Dates: start: 20041125, end: 20041209
  14. OMEPRAZOLE [Concomitant]
  15. ASPIRIN [Concomitant]
  16. ONE-ALPHA [Concomitant]
  17. ZOCOR [Concomitant]
     Route: 048
     Dates: start: 20041019
  18. EUSAPRIM [Concomitant]
     Route: 042
     Dates: start: 20041118
  19. EUSAPRIM [Concomitant]
     Route: 048
     Dates: end: 20041125
  20. MEDROL [Suspect]
     Route: 048
     Dates: start: 20040611
  21. LASIX [Concomitant]
     Route: 042
     Dates: start: 20040226, end: 20040227
  22. LASIX [Concomitant]
     Route: 048
     Dates: start: 20040823, end: 20041019
  23. SOLU-MEDROL [Suspect]
     Route: 042
     Dates: start: 20040225, end: 20040225
  24. SOLU-MEDROL [Suspect]
     Route: 042
     Dates: start: 20040226, end: 20040227
  25. TARIVID [Concomitant]
     Route: 048
     Dates: start: 20040302, end: 20040325
  26. TARIVID [Concomitant]
     Route: 048
     Dates: start: 20040418, end: 20040428

REACTIONS (8)
  - BLOOD CREATININE INCREASED [None]
  - CONGENITAL CYSTIC KIDNEY DISEASE [None]
  - ESCHERICHIA SEPSIS [None]
  - INFECTED CYST [None]
  - KIDNEY INFECTION [None]
  - OPPORTUNISTIC INFECTION [None]
  - PYELONEPHRITIS [None]
  - UROSEPSIS [None]
